FAERS Safety Report 9129655 (Version 5)
Quarter: 2013Q3

REPORT INFORMATION
  Report Type: Spontaneous
  Country: US (occurrence: US)
  Receive Date: 20130228
  Receipt Date: 20130726
  Transmission Date: 20140515
  Serious: No
  Sender: FDA-Public Use
  Company Number: US-009507513-1302USA012845

PATIENT
  Age: 58 Year
  Sex: Male

DRUGS (3)
  1. PEGINTRON [Suspect]
     Indication: HEPATITIS C
     Dosage: REDIPEN
     Dates: start: 20130202
  2. REBETOL [Suspect]
     Indication: HEPATITIS C
     Dosage: UNK
     Route: 048
     Dates: start: 20130202
  3. VICTRELIS [Suspect]
     Indication: HEPATITIS C
     Dosage: UNK
     Route: 048
     Dates: start: 20130224

REACTIONS (21)
  - Insomnia [Unknown]
  - Dysgeusia [Unknown]
  - Diarrhoea [Unknown]
  - Respiratory disorder [Unknown]
  - Nausea [Unknown]
  - Dysgeusia [Unknown]
  - Rash [Unknown]
  - Fatigue [Unknown]
  - Anaemia [Unknown]
  - Vertigo [Recovered/Resolved]
  - Chills [Unknown]
  - Chills [Unknown]
  - Haemoglobin decreased [Unknown]
  - Headache [Not Recovered/Not Resolved]
  - Rash [Not Recovered/Not Resolved]
  - Gastrointestinal disorder [Not Recovered/Not Resolved]
  - Respiratory disorder [Not Recovered/Not Resolved]
  - Crying [Unknown]
  - Alopecia [Unknown]
  - Hair texture abnormal [Unknown]
  - Hair texture abnormal [Unknown]
